FAERS Safety Report 9984215 (Version 1)
Quarter: 2014Q1

REPORT INFORMATION
  Report Type: Report from Study
  Country: US (occurrence: US)
  Receive Date: 20140307
  Receipt Date: 20140307
  Transmission Date: 20141002
  Serious: No
  Sender: FDA-Public Use
  Company Number: US-ABBVIE-13P-163-1182652-00

PATIENT
  Age: 62 Year
  Sex: Male

DRUGS (9)
  1. HUMIRA [Suspect]
     Indication: PSORIASIS
     Dates: start: 2009
  2. ALLOPURINOL [Concomitant]
     Indication: GOUT
  3. ATENOLOL [Concomitant]
     Indication: HYPERTENSION
  4. BENAZEPRIL [Concomitant]
     Indication: HYPERTENSION
  5. ABILIFY [Concomitant]
     Indication: BIPOLAR DISORDER
  6. LOVASTATIN [Concomitant]
     Indication: BLOOD CHOLESTEROL INCREASED
  7. FUROSEMIDE [Concomitant]
     Indication: CARDIAC FAILURE CONGESTIVE
  8. METFORMIN [Concomitant]
     Indication: DIABETES MELLITUS
  9. MVI [Concomitant]
     Indication: VITAMIN SUPPLEMENTATION
     Route: 048

REACTIONS (1)
  - Inappropriate schedule of drug administration [Recovered/Resolved]
